FAERS Safety Report 12579635 (Version 2)
Quarter: 2016Q3

REPORT INFORMATION
  Report Type: Spontaneous
  Country: JP (occurrence: JP)
  Receive Date: 20160721
  Receipt Date: 20160802
  Transmission Date: 20161109
  Serious: Yes (Hospitalization, Other)
  Sender: FDA-Public Use
  Company Number: JP-ELI_LILLY_AND_COMPANY-JP201607006803

PATIENT
  Age: 55 Year
  Sex: Female

DRUGS (4)
  1. 5-FU                               /00098801/ [Concomitant]
     Active Substance: FLUOROURACIL
     Indication: HYPOPHARYNGEAL CANCER
     Dosage: UNK UNK, UNKNOWN
     Route: 065
     Dates: start: 20150407
  2. CARBOPLATIN. [Concomitant]
     Active Substance: CARBOPLATIN
     Indication: HYPOPHARYNGEAL CANCER
     Dosage: UNK UNK, UNKNOWN
     Route: 065
     Dates: start: 20150407
  3. PACLITAXEL. [Concomitant]
     Active Substance: PACLITAXEL
     Indication: HYPOPHARYNGEAL CANCER
     Dosage: UNK UNK, UNKNOWN
     Route: 065
  4. ERBITUX [Suspect]
     Active Substance: CETUXIMAB
     Indication: HYPOPHARYNGEAL CANCER
     Dosage: UNK UNK, UNKNOWN
     Route: 042
     Dates: start: 20150212, end: 20150421

REACTIONS (19)
  - Hyponatraemia [Recovered/Resolved]
  - Stomatitis [Unknown]
  - Alanine aminotransferase increased [Unknown]
  - Lung abscess [Recovered/Resolved]
  - Aspartate aminotransferase increased [Unknown]
  - Dyspnoea [Recovering/Resolving]
  - Dry skin [Unknown]
  - Infectious pleural effusion [Recovered/Resolved]
  - Interstitial lung disease [Recovered/Resolved]
  - Constipation [Unknown]
  - White blood cell count decreased [Unknown]
  - Anaemia [Not Recovered/Not Resolved]
  - Platelet count decreased [Unknown]
  - Paronychia [Not Recovered/Not Resolved]
  - Neutrophil count decreased [Unknown]
  - Hyperkalaemia [Recovered/Resolved]
  - Tumour associated fever [Unknown]
  - Nausea [Unknown]
  - Dermatitis acneiform [Unknown]

NARRATIVE: CASE EVENT DATE: 20150313
